FAERS Safety Report 16933174 (Version 1)
Quarter: 2019Q4

REPORT INFORMATION
  Report Type: Report from Study
  Country: US (occurrence: US)
  Receive Date: 20191018
  Receipt Date: 20191018
  Transmission Date: 20200122
  Serious: No
  Sender: FDA-Public Use
  Company Number: US-SUNOVION-2019SUN004397

PATIENT
  Age: 69 Year
  Sex: Female
  Weight: 70 kg

DRUGS (10)
  1. SENNA S [Concomitant]
     Active Substance: DOCUSATE SODIUM\SENNA LEAF
     Indication: CONSTIPATION
     Dosage: 2 DF
     Route: 048
  2. CARAFATE [Concomitant]
     Active Substance: SUCRALFATE
     Indication: NAUSEA
     Dosage: 10 ML
     Route: 048
  3. LONHALA MAGNAIR [Suspect]
     Active Substance: GLYCOPYRROLATE
     Dosage: UNK
     Route: 055
  4. CARAFATE [Concomitant]
     Active Substance: SUCRALFATE
     Indication: VOMITING
  5. ALBUTEROL. [Concomitant]
     Active Substance: ALBUTEROL
     Indication: WHEEZING
     Dosage: UNK
     Route: 055
  6. MYCOSTATINE [Concomitant]
     Active Substance: NYSTATIN
     Indication: ORAL CANDIDIASIS
     Dosage: 5 ML, Q4H
     Route: 048
  7. ADVAIR HFA [Concomitant]
     Active Substance: FLUTICASONE PROPIONATE\SALMETEROL XINAFOATE
     Dosage: UNK
     Route: 055
  8. MELATONIN [Concomitant]
     Active Substance: MELATONIN
     Indication: INSOMNIA
     Dosage: 2 DF
     Route: 048
  9. SPIRIVA RESPIMAT [Concomitant]
     Active Substance: TIOTROPIUM BROMIDE
     Dosage: 2 DF, QD
     Route: 055
  10. ROBITUSSIN CHEST CONGESTION [Concomitant]
     Active Substance: GUAIFENESIN
     Indication: COUGH
     Dosage: 10 ML, TID
     Route: 048

REACTIONS (1)
  - Dyspnoea [Unknown]

NARRATIVE: CASE EVENT DATE: 20191007
